FAERS Safety Report 13557004 (Version 4)
Quarter: 2018Q3

REPORT INFORMATION
  Report Type: Spontaneous
  Country: US (occurrence: US)
  Receive Date: 20170518
  Receipt Date: 20180927
  Transmission Date: 20181010
  Serious: Yes (Hospitalization, Other)
  Sender: FDA-Public Use
  Company Number: US-CLOVIS ONCOLOGY-CLO-2017-000212

PATIENT
  Age: 38 Year
  Sex: Female

DRUGS (3)
  1. RUBRACA [Suspect]
     Active Substance: RUCAPARIB CAMSYLATE
     Indication: VULVAL CANCER
     Dosage: 600 MG, BID
     Route: 048
     Dates: start: 20170317, end: 20170414
  2. METFORMIN HYDROCHLORIDE. [Concomitant]
     Active Substance: METFORMIN HYDROCHLORIDE
     Indication: PRODUCT USED FOR UNKNOWN INDICATION
     Dosage: 500 MG, BID
     Route: 048
  3. VITAMIN D3 [Concomitant]
     Active Substance: CHOLECALCIFEROL
     Indication: PRODUCT USED FOR UNKNOWN INDICATION
     Dosage: 2000 UNITS, QD
     Route: 048

REACTIONS (8)
  - Myelodysplastic syndrome [Unknown]
  - Vomiting [Unknown]
  - Off label use [Unknown]
  - Thrombocytopenia [Unknown]
  - Blood count abnormal [Not Recovered/Not Resolved]
  - Neutropenia [Unknown]
  - Vomiting [Recovered/Resolved]
  - Anaemia [Recovered/Resolved]

NARRATIVE: CASE EVENT DATE: 20170327
